FAERS Safety Report 16726545 (Version 2)
Quarter: 2019Q3

REPORT INFORMATION
  Report Type: Spontaneous
  Country: US (occurrence: ZA)
  Receive Date: 20190821
  Receipt Date: 20190903
  Transmission Date: 20191005
  Serious: Yes (Hospitalization)
  Sender: FDA-Public Use
  Company Number: US-SUNOVION-2019SUN003477

PATIENT
  Sex: Female

DRUGS (2)
  1. INDACATEROL AND GLYCOPYRROLATE [Suspect]
     Active Substance: GLYCOPYRROLATE\INDACATEROL MALEATE
     Indication: ASTHMA
     Dosage: 63 MG, UNK
     Route: 065
  2. THEOPHYLLINE [Suspect]
     Active Substance: THEOPHYLLINE ANHYDROUS
     Indication: ASTHMA
     Dosage: 200 MG, QD
     Route: 048

REACTIONS (2)
  - Malaise [Unknown]
  - Emphysema [Not Recovered/Not Resolved]
